FAERS Safety Report 11708123 (Version 1)
Quarter: 2015Q4

REPORT INFORMATION
  Report Type: Spontaneous
  Country: US (occurrence: US)
  Receive Date: 20151104
  Receipt Date: 20151104
  Transmission Date: 20160304
  Serious: No
  Sender: FDA-Public Use
  Company Number: US-ELI_LILLY_AND_COMPANY-US201101002819

PATIENT
  Sex: Female

DRUGS (3)
  1. CALCIUM [Concomitant]
     Active Substance: CALCIUM
  2. FORTEO [Suspect]
     Active Substance: TERIPARATIDE
     Dosage: 20 UG, QD
     Dates: end: 20110722
  3. FORTEO [Suspect]
     Active Substance: TERIPARATIDE
     Indication: OSTEOPOROSIS
     Dosage: 20 UG, QD
     Dates: start: 200909

REACTIONS (9)
  - Gait disturbance [Unknown]
  - Complex regional pain syndrome [Not Recovered/Not Resolved]
  - Tremor [Unknown]
  - Blood calcium increased [Recovered/Resolved]
  - Hypersomnia [Unknown]
  - Abasia [Unknown]
  - Constipation [Unknown]
  - Muscle spasms [Unknown]
  - Asthenia [Unknown]
